FAERS Safety Report 8398797-1 (Version None)
Quarter: 2012Q2

REPORT INFORMATION
  Report Type: 
  Country: None (occurrence: None)
  Receive Date: 20120531
  Receipt Date: 20120525
  Transmission Date: 20120825
  Serious: Yes (Other)
  Sender: FDA-Public Use
  Company Number: CA-ROCHE-GNE287071

PATIENT
  Sex: Male
  Weight: 92.098 kg

DRUGS (9)
  1. OMALIZUMAB [Suspect]
     Dosage: 375 MG, Q2W
     Route: 058
     Dates: start: 20090527
  2. PREDNISONE TAB [Concomitant]
     Indication: PRODUCT USED FOR UNKNOWN INDICATION
  3. SYMBICORT [Concomitant]
  4. OMALIZUMAB [Suspect]
     Route: 058
     Dates: start: 20110630
  5. ADVAIR DISKUS 100/50 [Concomitant]
     Indication: PRODUCT USED FOR UNKNOWN INDICATION
  6. OMALIZUMAB [Suspect]
     Indication: ASTHMA
     Dosage: 375 MG, Q2W
     Route: 058
     Dates: start: 20061117
  7. OMALIZUMAB [Suspect]
     Dosage: 375 MG, Q2W
     Route: 058
     Dates: start: 20090707
  8. VENTOLIN [Concomitant]
  9. SINGULAIR [Concomitant]

REACTIONS (12)
  - PNEUMOTHORAX [None]
  - BLOOD PRESSURE INCREASED [None]
  - SINUS CONGESTION [None]
  - CHEST PAIN [None]
  - HYPOVENTILATION [None]
  - INFLUENZA [None]
  - WHEEZING [None]
  - ASTHMA [None]
  - RHINORRHOEA [None]
  - NASAL CONGESTION [None]
  - NASOPHARYNGITIS [None]
  - HYPERSENSITIVITY [None]
